FAERS Safety Report 6987259-1 (Version None)
Quarter: 2010Q3

REPORT INFORMATION
  Report Type: 
  Country: None (occurrence: None)
  Receive Date: 20100916
  Receipt Date: 20100914
  Transmission Date: 20110219
  Serious: Yes (Other)
  Sender: FDA-Public Use
  Company Number: DE-BAYER-201014303GPV

PATIENT
  Age: 62 Year
  Sex: Male

DRUGS (12)
  1. SORAFENIB [Suspect]
     Indication: RENAL CELL CARCINOMA
     Dosage: TOTAL DAILY DOSE: 400 MG
     Route: 048
     Dates: start: 20100404, end: 20100608
  2. SORAFENIB [Suspect]
     Dates: start: 20100102, end: 20100128
  3. SORAFENIB [Suspect]
     Dates: end: 20100325
  4. SUNITINIB MALATE [Suspect]
     Indication: RENAL CELL CARCINOMA
     Route: 048
     Dates: start: 20100702
  5. PANTOPRAZOLE SODIUM [Concomitant]
     Dates: start: 20100121, end: 20100218
  6. PANTOPRAZOLE SODIUM [Concomitant]
     Dates: start: 20100701
  7. AMLODIPINE [Concomitant]
     Dates: start: 20100121, end: 20100202
  8. BIOHEXAL [Concomitant]
     Dates: start: 20100218
  9. LOPERAMIDE [Concomitant]
     Dates: start: 20100304
  10. RANTIC [Concomitant]
     Dates: start: 20100218, end: 20100701
  11. DASATINIB [Concomitant]
     Dates: end: 20100326
  12. RAMIPRIL [Concomitant]
     Dates: start: 20100702

REACTIONS (3)
  - DIARRHOEA [None]
  - N-TERMINAL PROHORMONE BRAIN NATRIURETIC PEPTIDE [None]
  - URTICARIA [None]
